FAERS Safety Report 7470719-7 (Version None)
Quarter: 2011Q2

REPORT INFORMATION
  Report Type: 
  Country: None (occurrence: None)
  Receive Date: 20110510
  Receipt Date: 20110427
  Transmission Date: 20111010
  Serious: Yes (Other)
  Sender: FDA-Public Use
  Company Number: PHHY2011CA36913

PATIENT
  Age: 23 Year
  Sex: Male

DRUGS (1)
  1. CYCLOSPORINE [Suspect]
     Indication: LIVER TRANSPLANT

REACTIONS (11)
  - TINNITUS [None]
  - HEADACHE [None]
  - MALFORMATION VENOUS [None]
  - OTORRHOEA [None]
  - BENIGN INTRACRANIAL HYPERTENSION [None]
  - VISION BLURRED [None]
  - EYE DISORDER [None]
  - CEREBROSPINAL FISTULA [None]
  - RHINORRHOEA [None]
  - VENOUS PRESSURE INCREASED [None]
  - PAPILLOEDEMA [None]
